FAERS Safety Report 17898338 (Version 1)
Quarter: 2020Q2

REPORT INFORMATION
  Report Type: Spontaneous
  Country: US (occurrence: US)
  Receive Date: 20200615
  Receipt Date: 20200615
  Transmission Date: 20200714
  Serious: No
  Sender: FDA-Public Use
  Company Number: US-PERRIGO-20US006653

PATIENT
  Age: 61 Year
  Sex: Female
  Weight: 72.56 kg

DRUGS (6)
  1. ALBUTEROL SULFATE. [Suspect]
     Active Substance: ALBUTEROL SULFATE
     Dosage: 90 MCG, 1 TO 3 DAILY, PRN
     Route: 055
     Dates: start: 20200415
  2. CLONAZEPAM. [Concomitant]
     Active Substance: CLONAZEPAM
     Indication: TREMOR
     Dosage: UNK
     Route: 065
  3. ALBUTEROL SULFATE. [Suspect]
     Active Substance: ALBUTEROL SULFATE
     Dosage: 90 MCG, 1 TO 3 DAILY, PRN
     Route: 055
     Dates: start: 202003, end: 20200414
  4. TOPIRAMATE. [Concomitant]
     Active Substance: TOPIRAMATE
     Indication: TREMOR
     Dosage: UNK
     Route: 065
  5. ALBUTEROL SULFATE. [Suspect]
     Active Substance: ALBUTEROL SULFATE
     Indication: ASTHMA
     Dosage: 90 MCG, 1 TO 3 DAILY, PRN
     Route: 055
     Dates: start: 20200325, end: 202003
  6. PROPANOLOL                         /00030001/ [Concomitant]
     Active Substance: PROPRANOLOL HYDROCHLORIDE
     Indication: TREMOR
     Dosage: UNK
     Route: 065

REACTIONS (3)
  - Device delivery system issue [Unknown]
  - Tongue dry [Unknown]
  - Accidental exposure to product [Unknown]

NARRATIVE: CASE EVENT DATE: 202003
